FAERS Safety Report 21973203 (Version 2)
Quarter: 2023Q1

REPORT INFORMATION
  Report Type: Spontaneous
  Country: US (occurrence: US)
  Receive Date: 20230209
  Receipt Date: 20230222
  Transmission Date: 20230417
  Serious: No
  Sender: FDA-Public Use
  Company Number: US-SA-SAC20230206000198

PATIENT
  Age: 73 Year
  Sex: Male

DRUGS (2)
  1. DUPIXENT [Suspect]
     Active Substance: DUPILUMAB
     Indication: Dermatitis atopic
     Dosage: 600 MG, 1X
     Route: 058
     Dates: start: 202301, end: 202301
  2. DUPIXENT [Suspect]
     Active Substance: DUPILUMAB
     Dosage: 300 MG, QOW
     Route: 058
     Dates: start: 202301

REACTIONS (17)
  - Dandruff [Unknown]
  - Peripheral swelling [Unknown]
  - Skin wound [Unknown]
  - Condition aggravated [Unknown]
  - Psoriasis [Unknown]
  - Skin haemorrhage [Unknown]
  - Condition aggravated [Unknown]
  - Dermatitis [Unknown]
  - Erythema [Unknown]
  - Skin swelling [Unknown]
  - Dry skin [Unknown]
  - Skin exfoliation [Unknown]
  - Condition aggravated [Unknown]
  - Skin burning sensation [Unknown]
  - Condition aggravated [Unknown]
  - Rash [Unknown]
  - Dermatitis atopic [Unknown]

NARRATIVE: CASE EVENT DATE: 20230101
